FAERS Safety Report 15065313 (Version 1)
Quarter: 2018Q2

REPORT INFORMATION
  Report Type: Spontaneous
  Country: US (occurrence: US)
  Receive Date: 20180626
  Receipt Date: 20180626
  Transmission Date: 20180711
  Serious: Yes (Other)
  Sender: FDA-Public Use
  Company Number: US-BAUSCH-BL-2018-017493

PATIENT
  Age: 88 Year
  Sex: Male
  Weight: 68.1 kg

DRUGS (3)
  1. PYRIDOSTIGMINE BROMIDE. [Suspect]
     Active Substance: PYRIDOSTIGMINE BROMIDE
     Indication: EYELID PTOSIS
     Dosage: ONE WHOLE TABLET BY MOUTH 4 TIMES A DAY
     Route: 048
     Dates: start: 201806
  2. PYRIDOSTIGMINE BROMIDE. [Suspect]
     Active Substance: PYRIDOSTIGMINE BROMIDE
     Indication: DIPLOPIA
     Dosage: HALF TABLET BY MOUTH 4 TIMES A DAY
     Route: 048
     Dates: start: 20180601, end: 201806
  3. PYRIDOSTIGMINE BROMIDE. [Suspect]
     Active Substance: PYRIDOSTIGMINE BROMIDE
     Indication: OFF LABEL USE

REACTIONS (4)
  - Off label use [Not Recovered/Not Resolved]
  - Gait disturbance [Not Recovered/Not Resolved]
  - Pollakiuria [Not Recovered/Not Resolved]
  - Hypokinesia [Not Recovered/Not Resolved]

NARRATIVE: CASE EVENT DATE: 20180120
